FAERS Safety Report 11809814 (Version 2)
Quarter: 2016Q2

REPORT INFORMATION
  Report Type: Report from Study
  Country: US (occurrence: US)
  Receive Date: 20151208
  Receipt Date: 20160603
  Transmission Date: 20160815
  Serious: Yes (Hospitalization)
  Sender: FDA-Public Use
  Company Number: US-GILEAD-2015-0185869

PATIENT
  Age: 67 Year
  Sex: Female

DRUGS (3)
  1. AMBRISENTAN [Suspect]
     Active Substance: AMBRISENTAN
     Indication: PULMONARY HYPERTENSION
     Dosage: 10 MG, QD
     Route: 065
     Dates: start: 20070831
  2. COUMADIN [Concomitant]
     Active Substance: WARFARIN SODIUM
  3. VIAGRA [Concomitant]
     Active Substance: SILDENAFIL CITRATE

REACTIONS (4)
  - Haematochezia [Unknown]
  - Diarrhoea [Unknown]
  - Blood urine present [Unknown]
  - Irritable bowel syndrome [Unknown]
